FAERS Safety Report 24836247 (Version 2)
Quarter: 2025Q1

REPORT INFORMATION
  Report Type: Spontaneous
  Country: US (occurrence: US)
  Receive Date: 20250113
  Receipt Date: 20250118
  Transmission Date: 20250409
  Serious: Yes (Other)
  Sender: AUROBINDO
  Company Number: US-MLMSERVICE-20241226-PI325745-00080-1

PATIENT
  Age: 65 Year
  Sex: Male

DRUGS (1)
  1. CARBIDOPA\LEVODOPA [Suspect]
     Active Substance: CARBIDOPA\LEVODOPA
     Indication: Parkinson^s disease
     Route: 065

REACTIONS (1)
  - Proctitis ulcerative [Recovering/Resolving]
